FAERS Safety Report 5511630-8 (Version None)
Quarter: 2007Q4

REPORT INFORMATION
  Report Type: 
  Country: None (occurrence: None)
  Receive Date: 20071109
  Receipt Date: 20051201
  Transmission Date: 20080405
  Serious: Yes (Hospitalization)
  Sender: FDA-Public Use
  Company Number: US-PFIZER INC-2003167160US

PATIENT
  Sex: Male
  Weight: 85 kg

DRUGS (20)
  1. IRINOTECAN HCL [Suspect]
     Indication: COLORECTAL CANCER
     Dosage: DAILY DOSE:300MG-FREQ:CYCLIC
     Route: 042
     Dates: start: 20030616, end: 20030616
  2. CELECOXIB [Suspect]
     Indication: COLORECTAL CANCER
     Dosage: DAILY DOSE:400MG
     Route: 048
     Dates: start: 20030616, end: 20030625
  3. XELODA [Suspect]
     Indication: COLORECTAL CANCER
     Dosage: DAILY DOSE:500MG/M2
     Route: 048
     Dates: start: 20030616, end: 20030625
  4. CUMADIN [Concomitant]
  5. VITAMIN B6 [Concomitant]
  6. LOPERAMIDE HCL [Concomitant]
  7. LANOXIN [Concomitant]
  8. VERAPAMIL [Concomitant]
  9. TAMSULOSIN HYDROCHLORIDE [Concomitant]
  10. PAXIL [Concomitant]
  11. PRAVACHOL [Concomitant]
  12. AMBIEN [Concomitant]
  13. POTASSIUM CHLORIDE [Concomitant]
  14. TYLENOL (CAPLET) [Concomitant]
  15. MONOPRIL [Concomitant]
  16. FUROSEMIDE [Concomitant]
  17. XANAX [Concomitant]
  18. ATROPINE W/DIPHENOXYLATE [Concomitant]
  19. METRONIDAZOLE [Concomitant]
  20. QUESTRAN [Concomitant]

REACTIONS (2)
  - DEHYDRATION [None]
  - DIARRHOEA [None]
